FAERS Safety Report 5574616-3 (Version None)
Quarter: 2007Q4

REPORT INFORMATION
  Report Type: 
  Country: None (occurrence: None)
  Receive Date: 20071130
  Receipt Date: 20070626
  Transmission Date: 20080405
  Serious: Yes (Disabling, Other)
  Sender: FDA-Public Use
  Company Number: WAES 0706USA04966

PATIENT
  Age: 63 Year
  Sex: Female
  Weight: 46.2669 kg

DRUGS (7)
  1. FOSAMAX [Suspect]
     Indication: OSTEOPOROSIS
     Dosage: 70 MG/WKY/PO
     Route: 048
     Dates: start: 20010101, end: 20070506
  2. ADVAIR DISKUS 100/50 [Concomitant]
  3. COZAAR [Concomitant]
  4. PAXIL [Concomitant]
  5. ALBUTEROL [Concomitant]
  6. HYDROCHLOROTHIAZIDE [Concomitant]
  7. POTASSIUM CHLORIDE [Concomitant]

REACTIONS (1)
  - OSTEONECROSIS [None]
